FAERS Safety Report 4714967-5 (Version None)
Quarter: 2005Q3

REPORT INFORMATION
  Report Type: 
  Country: None (occurrence: None)
  Receive Date: 20050713
  Receipt Date: 20050629
  Transmission Date: 20060218
  Serious: Yes (Other)
  Sender: FDA-Public Use
  Company Number: 2005RR-00578

PATIENT
  Age: 25 Year
  Sex: Female

DRUGS (3)
  1. OFLOXACIN [Suspect]
     Indication: PELVIC INFLAMMATORY DISEASE
     Dosage: 400 MG, BID
  2. MEBEVERINE [Concomitant]
  3. METRONIDAZOLE [Concomitant]

REACTIONS (11)
  - ABNORMAL BEHAVIOUR [None]
  - ANXIETY [None]
  - COGNITIVE DETERIORATION [None]
  - DEPRESSED MOOD [None]
  - DISEASE RECURRENCE [None]
  - DISTURBANCE IN ATTENTION [None]
  - FEAR [None]
  - PALPITATIONS [None]
  - PSYCHOMOTOR HYPERACTIVITY [None]
  - RESTLESSNESS [None]
  - TEARFULNESS [None]
